FAERS Safety Report 7293086-0 (Version None)
Quarter: 2011Q1

REPORT INFORMATION
  Report Type: 
  Country: None (occurrence: None)
  Receive Date: 20110203
  Receipt Date: 20110119
  Transmission Date: 20110831
  Serious: Yes (Other)
  Sender: FDA-Public Use
  Company Number: 026244

PATIENT
  Sex: Male

DRUGS (1)
  1. EQUASYM (EQUASYM) [Suspect]
     Dosage: (30 MG BID ORAL)
     Route: 048
     Dates: start: 20100101

REACTIONS (1)
  - THROMBOSIS [None]
